FAERS Safety Report 5656238-9 (Version None)
Quarter: 2008Q1

REPORT INFORMATION
  Report Type: 
  Country: None (occurrence: None)
  Receive Date: 20080305
  Receipt Date: 20080225
  Transmission Date: 20080703
  Serious: Yes (Hospitalization, Other)
  Sender: FDA-Public Use
  Company Number: 2008AL001086

PATIENT
  Age: 10 Year
  Sex: Female

DRUGS (1)
  1. CARBAMAZEPINE TABLETS USP, 200 MG (PUREPAC) )L (CARBAMAZEPINE TABLETS [Suspect]
     Indication: COMPLEX PARTIAL SEIZURES
     Dosage: 600 MG; BID

REACTIONS (12)
  - ALANINE AMINOTRANSFERASE INCREASED [None]
  - AMMONIA INCREASED [None]
  - ASPARTATE AMINOTRANSFERASE INCREASED [None]
  - BLOOD ALKALINE PHOSPHATASE INCREASED [None]
  - BLOOD LACTATE DEHYDROGENASE INCREASED [None]
  - DRUG RASH WITH EOSINOPHILIA AND SYSTEMIC SYMPTOMS [None]
  - GENERAL PHYSICAL HEALTH DETERIORATION [None]
  - GLUTAMATE DEHYDROGENASE INCREASED [None]
  - HEPATOMEGALY [None]
  - LYMPHADENOPATHY [None]
  - SOMNOLENCE [None]
  - SPLENOMEGALY [None]
